FAERS Safety Report 5397893-0 (Version None)
Quarter: 2007Q3

REPORT INFORMATION
  Report Type: 
  Country: None (occurrence: None)
  Receive Date: 20070726
  Receipt Date: 20070627
  Transmission Date: 20080115
  Serious: Yes (Hospitalization, Other)
  Sender: FDA-Public Use
  Company Number: JP-MERCK-0707USA00598

PATIENT
  Age: 17 Year
  Sex: Female

DRUGS (4)
  1. PRINIVIL [Suspect]
     Indication: GLOMERULONEPHRITIS PROLIFERATIVE
     Route: 048
     Dates: start: 20010101
  2. PRINIVIL [Suspect]
     Route: 048
     Dates: end: 20060101
  3. DIPYRIDAMOLE [Concomitant]
     Indication: GLOMERULONEPHRITIS PROLIFERATIVE
     Route: 048
  4. ANTIMICROBIAL (UNSPECIFIED) [Concomitant]
     Indication: GASTROENTERITIS
     Route: 065

REACTIONS (2)
  - GASTROENTERITIS [None]
  - RENAL IMPAIRMENT [None]
